FAERS Safety Report 22156718 (Version 2)
Quarter: 2025Q4

REPORT INFORMATION
  Report Type: Spontaneous
  Country: US (occurrence: US)
  Receive Date: 20230330
  Receipt Date: 20251217
  Transmission Date: 20260117
  Serious: No
  Sender: BIOGEN
  Company Number: US-BIOGEN-2022BI01124460

PATIENT
  Age: 58 Year
  Sex: Female

DRUGS (1)
  1. PLEGRIDY [Suspect]
     Active Substance: PEGINTERFERON BETA-1A
     Indication: Multiple sclerosis
     Dates: start: 20220512

REACTIONS (6)
  - Fatigue [Not Recovered/Not Resolved]
  - Influenza like illness [Unknown]
  - Pyrexia [Recovered/Resolved]
  - Chills [Recovered/Resolved]
  - Insomnia [Not Recovered/Not Resolved]
  - Stress [Not Recovered/Not Resolved]

NARRATIVE: CASE EVENT DATE: 20220512
